FAERS Safety Report 13764101 (Version 3)
Quarter: 2021Q3

REPORT INFORMATION
  Report Type: Report from Study
  Country: US (occurrence: US)
  Receive Date: 20170718
  Receipt Date: 20210716
  Transmission Date: 20211014
  Serious: No
  Sender: FDA-Public Use
  Company Number: US-VANDA PHARMACEUTICALS, INC-2017TASUS001586

PATIENT
  Age: 35 Year
  Sex: Male

DRUGS (12)
  1. DEPLIN [Concomitant]
     Active Substance: LEVOMEFOLATE CALCIUM
     Indication: PRODUCT USED FOR UNKNOWN INDICATION
     Dosage: UNK
  2. ENLYTE [Concomitant]
     Active Substance: CALCIUM ASCORBATE\CALCIUM THREONATE\COBALAMIN\COCARBOXYLASE\FERROUS GLUCONATE\FISH OIL\FLAVIN ADENINE DINUCLEOTIDE\FOLIC ACID\LEUCOVORIN CALCIUM\LEVOMEFOLIC ACID\METHYLCOBALAMIN\NADIDE\PYRIDOXAL 5-PHOSPHATE
     Indication: PRODUCT USED FOR UNKNOWN INDICATION
     Dosage: UNK
  3. TESTOSTERONE. [Concomitant]
     Active Substance: TESTOSTERONE
     Indication: PRODUCT USED FOR UNKNOWN INDICATION
     Dosage: UNK
  4. KLONOPIN [Concomitant]
     Active Substance: CLONAZEPAM
     Indication: PRODUCT USED FOR UNKNOWN INDICATION
     Dosage: UNK
  5. TRAMADOL. [Concomitant]
     Active Substance: TRAMADOL
     Indication: PRODUCT USED FOR UNKNOWN INDICATION
     Dosage: UNK
  6. HETLIOZ [Suspect]
     Active Substance: TASIMELTEON
     Dosage: 20 MILLIGRAM, QD
     Route: 048
     Dates: start: 20170406
  7. ALPRAZOLAM. [Concomitant]
     Active Substance: ALPRAZOLAM
     Indication: PRODUCT USED FOR UNKNOWN INDICATION
     Dosage: UNK
  8. HETLIOZ [Suspect]
     Active Substance: TASIMELTEON
     Indication: NON-24-HOUR SLEEP-WAKE DISORDER
     Dosage: 20 MG, QHS
     Route: 048
     Dates: start: 20170406
  9. TESTOSTERONE. [Concomitant]
     Active Substance: TESTOSTERONE
     Indication: PRODUCT USED FOR UNKNOWN INDICATION
     Dosage: UNK
  10. IBUPROFEN. [Concomitant]
     Active Substance: IBUPROFEN
     Indication: PRODUCT USED FOR UNKNOWN INDICATION
     Dosage: UNK
  11. NORCO [Concomitant]
     Active Substance: ACETAMINOPHEN\HYDROCODONE BITARTRATE
     Indication: PRODUCT USED FOR UNKNOWN INDICATION
     Dosage: UNK
  12. VITAMIN D NOS [Concomitant]
     Active Substance: VITAMIN D NOS
     Indication: PRODUCT USED FOR UNKNOWN INDICATION
     Dosage: UNK

REACTIONS (14)
  - Sopor [Unknown]
  - Nausea [Recovered/Resolved]
  - Appetite disorder [Recovered/Resolved]
  - Feeling abnormal [Recovered/Resolved]
  - Hot flush [Recovered/Resolved]
  - Eye pain [Recovered/Resolved]
  - Toothache [Recovered/Resolved]
  - Neck pain [Recovered/Resolved]
  - Flushing [Recovered/Resolved]
  - Fatigue [Recovered/Resolved]
  - Hallucination [Recovered/Resolved]
  - Altered state of consciousness [Recovered/Resolved]
  - Pain in jaw [Recovered/Resolved]
  - Headache [Recovered/Resolved]

NARRATIVE: CASE EVENT DATE: 201704
